FAERS Safety Report 13395320 (Version 2)
Quarter: 2017Q2

REPORT INFORMATION
  Report Type: Spontaneous
  Country: US (occurrence: US)
  Receive Date: 20170403
  Receipt Date: 20170623
  Transmission Date: 20170830
  Serious: Yes (Hospitalization)
  Sender: FDA-Public Use
  Company Number: US-PFIZER INC-2017141800

PATIENT
  Age: 69 Year
  Sex: Female
  Weight: 71 kg

DRUGS (13)
  1. PROAIR HFA [Concomitant]
     Active Substance: ALBUTEROL SULFATE
     Dosage: 90 UG, UNK
     Dates: start: 20150720
  2. OXYCODONE [Concomitant]
     Active Substance: OXYCODONE
     Dosage: 5 MG, UNK
     Dates: start: 20170424
  3. IBRANCE [Suspect]
     Active Substance: PALBOCICLIB
     Indication: NEOPLASM MALIGNANT
     Dosage: 125 MG, DAILY, ^FOR 3 WEEKS^
     Route: 048
  4. VALIUM [Concomitant]
     Active Substance: DIAZEPAM
     Dosage: 5 MG, UNK
     Dates: start: 20151005
  5. HYDRALAZINE [Concomitant]
     Active Substance: HYDRALAZINE HYDROCHLORIDE
     Dosage: 50 MG, UNK
     Dates: start: 20160829
  6. IBRANCE [Suspect]
     Active Substance: PALBOCICLIB
     Dosage: 100 MG, ONCE A DAY
     Route: 048
  7. FLONASE [Concomitant]
     Active Substance: FLUTICASONE PROPIONATE
     Dosage: UNK
     Dates: start: 20150206
  8. CARVEDILOL. [Concomitant]
     Active Substance: CARVEDILOL
     Indication: HYPERTENSION
     Dosage: 25 MG, TWICE A DAY
  9. GLIPIZIDE W/METFORMIN [Concomitant]
     Active Substance: GLIPIZIDE\METFORMIN HYDROCHLORIDE
     Indication: DIABETES MELLITUS
     Dosage: 1 DF, DAILY [GLIPIZIDE 2.5 MG]/[METFORMIN 250 MG]
  10. OXYCONTIN [Concomitant]
     Active Substance: OXYCODONE HYDROCHLORIDE
     Dosage: 10 MG/ML
     Dates: start: 20170227
  11. GABAPENTIN. [Concomitant]
     Active Substance: GABAPENTIN
     Dosage: 300 MG, UNK
  12. AMLODIPINE [Concomitant]
     Active Substance: AMLODIPINE BESYLATE
     Dosage: 10 MG, UNK
     Dates: start: 20160829
  13. MUCINEX ALLERGY [Concomitant]
     Active Substance: FEXOFENADINE HYDROCHLORIDE
     Dosage: 180 MG, UNK
     Dates: start: 20150727

REACTIONS (4)
  - White blood cell count decreased [Recovered/Resolved]
  - Drug intolerance [Recovered/Resolved]
  - Viral upper respiratory tract infection [Recovered/Resolved]
  - Influenza [Recovered/Resolved]
